FAERS Safety Report 4894282-X (Version None)
Quarter: 2006Q1

REPORT INFORMATION
  Report Type: 
  Country: None (occurrence: None)
  Receive Date: 20060127
  Receipt Date: 20060118
  Transmission Date: 20060701
  Serious: Yes (Death, Disabling)
  Sender: FDA-Public Use
  Company Number: US-MERCK-0601USA02231

PATIENT

DRUGS (1)
  1. VIOXX [Suspect]
     Route: 048
     Dates: start: 20000101, end: 20040101

REACTIONS (7)
  - ANHEDONIA [None]
  - ANXIETY [None]
  - CEREBROVASCULAR ACCIDENT [None]
  - DEATH [None]
  - FEAR OF DISEASE [None]
  - PAIN [None]
  - POLYTRAUMATISM [None]
